FAERS Safety Report 8465891-6 (Version None)
Quarter: 2012Q2

REPORT INFORMATION
  Report Type: 
  Country: None (occurrence: None)
  Receive Date: 20120626
  Receipt Date: 20120626
  Transmission Date: 20120825
  Serious: Yes (Disabling, Other)
  Sender: FDA-Public Use
  Company Number: GB-PFIZER INC-2008US-19831

PATIENT
  Age: 85 Year
  Sex: Male

DRUGS (10)
  1. VERAPAMIL HCL [Suspect]
     Indication: ATRIAL FIBRILLATION
     Dosage: 40 MG, 3X/DAY
     Route: 048
     Dates: start: 20080801
  2. SIMVASTATIN [Suspect]
     Indication: ATRIAL FIBRILLATION
     Dosage: 40 MG, UNK
     Route: 065
     Dates: end: 20081101
  3. FUROSEMIDE [Concomitant]
     Dosage: 40 MG, UNK
  4. BRIMONIDINE [Concomitant]
     Dosage: UNK
  5. ACETYLSALICYLIC ACID [Concomitant]
     Dosage: UNK
  6. BECLOMETASONE DIPROPIONATE [Concomitant]
  7. LISINOPRIL [Concomitant]
     Dosage: 20 MG, UNK
  8. PANADEINE CO [Concomitant]
     Dosage: 2 MG, UNK
  9. SALBUTAMOL [Concomitant]
  10. SALMETEROL [Concomitant]
     Dosage: 2 MG, UNK

REACTIONS (3)
  - BLOOD CREATINE PHOSPHOKINASE INCREASED [None]
  - HYPOKINESIA [None]
  - MYOSITIS [None]
